FAERS Safety Report 21056343 (Version 1)
Quarter: 2022Q3

REPORT INFORMATION
  Report Type: Spontaneous
  Country: GB (occurrence: GR)
  Receive Date: 20220708
  Receipt Date: 20220708
  Transmission Date: 20221027
  Serious: Yes (Hospitalization)
  Sender: FDA-Public Use
  Company Number: GB-ORGANON-O2207GRC000090

PATIENT

DRUGS (10)
  1. MIRTAZAPINE [Suspect]
     Active Substance: MIRTAZAPINE
     Indication: Depression
     Dosage: 45 MG/DAY
     Route: 048
  2. MIRTAZAPINE [Suspect]
     Active Substance: MIRTAZAPINE
     Indication: Psychotic symptom
     Dosage: 60 (UNITS AND FREQUENCY NOT REPORTED)
     Route: 048
  3. OLANZAPINE [Suspect]
     Active Substance: OLANZAPINE
     Indication: Depression
     Dosage: 5 MG/DAY
  4. OLANZAPINE [Suspect]
     Active Substance: OLANZAPINE
     Indication: Psychotic symptom
  5. ALPRAZOLAM [Suspect]
     Active Substance: ALPRAZOLAM
     Indication: Depression
     Dosage: 3 MG/DAY
  6. ALPRAZOLAM [Suspect]
     Active Substance: ALPRAZOLAM
     Indication: Psychotic symptom
     Dosage: 4 (UNITS AND FREQUENCY NOT REPORTED)
  7. FLUNITRAZEPAM [Suspect]
     Active Substance: FLUNITRAZEPAM
     Indication: Depression
     Dosage: 1 MG/DAY
  8. FLUNITRAZEPAM [Suspect]
     Active Substance: FLUNITRAZEPAM
     Indication: Psychotic symptom
  9. BIPERIDEN [Suspect]
     Active Substance: BIPERIDEN
     Indication: Depression
     Dosage: 4 MG/DAY
  10. BIPERIDEN [Suspect]
     Active Substance: BIPERIDEN
     Indication: Psychotic symptom
     Dosage: 4 (UNITS AND FREQUENCY NOT REPORTED)

REACTIONS (1)
  - Parkinsonism [Recovered/Resolved]
